FAERS Safety Report 6608952-6 (Version None)
Quarter: 2010Q1

REPORT INFORMATION
  Report Type: 
  Country: None (occurrence: None)
  Receive Date: 20100301
  Receipt Date: 20100224
  Transmission Date: 20100710
  Serious: Yes (Other)
  Sender: FDA-Public Use
  Company Number: IT-ROXANE LABORATORIES, INC.-2010-RO-00199RO

PATIENT
  Age: 82 Year
  Sex: Female

DRUGS (3)
  1. METHOTREXATE [Suspect]
     Indication: PSORIASIS
     Dates: start: 20080501
  2. VINORELBINE [Concomitant]
     Indication: MYCOSIS FUNGOIDES
  3. CHLORAMBUCIL [Concomitant]
     Indication: MYCOSIS FUNGOIDES

REACTIONS (1)
  - MYCOSIS FUNGOIDES [None]
